FAERS Safety Report 5928393-4 (Version None)
Quarter: 2008Q4

REPORT INFORMATION
  Report Type: 
  Country: None (occurrence: None)
  Receive Date: 20081023
  Receipt Date: 20081017
  Transmission Date: 20090506
  Serious: Yes (Death)
  Sender: FDA-Public Use
  Company Number: GB-PFIZER INC-2008084049

PATIENT
  Age: 21 Year
  Sex: Female

DRUGS (7)
  1. PREDNISOLONE [Suspect]
     Route: 048
  2. METHOTREXATE [Suspect]
     Route: 058
  3. CYCLOSPORINE [Suspect]
  4. ENBREL [Suspect]
  5. ACITRETIN [Concomitant]
  6. RIFAMPICIN [Concomitant]
  7. VANCOMYCIN [Concomitant]

REACTIONS (1)
  - ORGANISING PNEUMONIA [None]
